FAERS Safety Report 16559275 (Version 1)
Quarter: 2019Q3

REPORT INFORMATION
  Report Type: Spontaneous
  Country: EG (occurrence: EG)
  Receive Date: 20190711
  Receipt Date: 20190711
  Transmission Date: 20191004
  Serious: Yes (Death, Other)
  Sender: FDA-Public Use
  Company Number: EG-SA-2019SA186940

PATIENT
  Age: 15 Year
  Sex: Male
  Weight: 42 kg

DRUGS (1)
  1. CEREZYME [Suspect]
     Active Substance: IMIGLUCERASE
     Indication: GAUCHER^S DISEASE TYPE III
     Dosage: 60 IU/KG, QOW
     Route: 041
     Dates: start: 20160407, end: 20190613

REACTIONS (2)
  - Epilepsy [Unknown]
  - Sudden death [Fatal]

NARRATIVE: CASE EVENT DATE: 20190626
